FAERS Safety Report 5385938-3 (Version None)
Quarter: 2007Q3

REPORT INFORMATION
  Report Type: 
  Country: None (occurrence: None)
  Receive Date: 20070710
  Receipt Date: 20070627
  Transmission Date: 20080115
  Serious: Yes (Hospitalization)
  Sender: FDA-Public Use
  Company Number: GXKR2007FR05568

PATIENT
  Age: 20 Year
  Sex: Female

DRUGS (2)
  1. SIMVASTATIN SANDOZ (NGX) (SIMVASTATIN ) FILM-COATED TABLET, 20MG [Suspect]
     Dosage: SEE IMAGE
     Route: 048
     Dates: start: 20070627, end: 20070627
  2. ZOLPIDEM TARTRATE [Concomitant]

REACTIONS (3)
  - INTENTIONAL OVERDOSE [None]
  - MYALGIA [None]
  - SUICIDE ATTEMPT [None]
